FAERS Safety Report 11993155 (Version 7)
Quarter: 2017Q1

REPORT INFORMATION
  Report Type: Report from Study
  Country: DE (occurrence: DE)
  Receive Date: 20160203
  Receipt Date: 20170117
  Transmission Date: 20170428
  Serious: Yes (Other)
  Sender: FDA-Public Use
  Company Number: DE-ROCHE-1705074

PATIENT
  Age: 74 Year
  Sex: Female
  Weight: 85 kg

DRUGS (10)
  1. CEFUROXIME. [Concomitant]
     Active Substance: CEFUROXIME
     Route: 031
     Dates: start: 20160224
  2. RANIBIZUMAB [Suspect]
     Active Substance: RANIBIZUMAB
     Route: 031
     Dates: start: 20141120
  3. DEXAHEXAL [Concomitant]
     Indication: PROPHYLAXIS
     Route: 031
     Dates: start: 20160202, end: 20160202
  4. RANIBIZUMAB [Suspect]
     Active Substance: RANIBIZUMAB
     Route: 031
     Dates: start: 20141023
  5. RANIBIZUMAB [Suspect]
     Active Substance: RANIBIZUMAB
     Indication: NEOVASCULAR AGE-RELATED MACULAR DEGENERATION
     Dosage: 0.5 MG (0.05 ML)
     Route: 050
     Dates: start: 20140613
  6. RANIBIZUMAB [Suspect]
     Active Substance: RANIBIZUMAB
     Route: 031
     Dates: start: 20140715
  7. DEXAHEXAL [Concomitant]
     Route: 031
     Dates: start: 20160224
  8. RANIBIZUMAB [Suspect]
     Active Substance: RANIBIZUMAB
     Route: 031
     Dates: start: 20141223, end: 20141223
  9. RANIBIZUMAB [Suspect]
     Active Substance: RANIBIZUMAB
     Indication: AGE-RELATED MACULAR DEGENERATION
     Route: 031
     Dates: start: 20140814
  10. CEFUROXIME. [Concomitant]
     Active Substance: CEFUROXIME
     Indication: PROPHYLAXIS
     Route: 031
     Dates: start: 20130202, end: 20130202

REACTIONS (1)
  - Glaucoma [Recovering/Resolving]

NARRATIVE: CASE EVENT DATE: 20150306
